FAERS Safety Report 24148751 (Version 1)
Quarter: 2024Q3

REPORT INFORMATION
  Report Type: Spontaneous
  Country: CO (occurrence: CO)
  Receive Date: 20240729
  Receipt Date: 20240729
  Transmission Date: 20241016
  Serious: Yes (Other)
  Sender: BAYER
  Company Number: CO-BAYER-2024A108134

PATIENT
  Age: 64 Year
  Sex: Female

DRUGS (1)
  1. GADOBUTROL [Suspect]
     Active Substance: GADOBUTROL
     Indication: Magnetic resonance imaging
     Dosage: UNK UNK, ONCE
     Route: 042
     Dates: start: 20240718, end: 20240718

REACTIONS (2)
  - Anaphylactic shock [None]
  - Seizure [None]

NARRATIVE: CASE EVENT DATE: 20240718
